FAERS Safety Report 15305547 (Version 5)
Quarter: 2018Q3

REPORT INFORMATION
  Report Type: Report from Study
  Country: None (occurrence: TW)
  Receive Date: 20180822
  Receipt Date: 20180910
  Transmission Date: 20181010
  Serious: Yes (Death, Hospitalization)
  Sender: FDA-Public Use
  Company Number: TW-ABBVIE-18K-153-2452685-00

PATIENT
  Age: 64 Year
  Sex: Female

DRUGS (7)
  1. HUMIRA [Suspect]
     Active Substance: ADALIMUMAB
     Indication: RHEUMATOID ARTHRITIS
     Route: 058
     Dates: start: 20180202, end: 20180726
  2. TREXAN [Concomitant]
     Active Substance: METHOTREXATE SODIUM
     Indication: IMMUNOMODULATORY THERAPY
     Route: 048
     Dates: start: 20171115, end: 20180814
  3. CELEBREX [Concomitant]
     Active Substance: CELECOXIB
     Indication: ANTIINFLAMMATORY THERAPY
     Route: 048
     Dates: start: 20170111, end: 20180814
  4. CELEBREX [Concomitant]
     Active Substance: CELECOXIB
     Indication: ANALGESIC THERAPY
  5. TREXAN [Concomitant]
     Active Substance: METHOTREXATE SODIUM
     Indication: RHEUMATOID ARTHRITIS
  6. FOLIC ACID. [Concomitant]
     Active Substance: FOLIC ACID
     Indication: RHEUMATOID ARTHRITIS
     Dates: start: 20170531
  7. HUMIRA [Suspect]
     Active Substance: ADALIMUMAB
     Indication: RHEUMATOID ARTHRITIS
     Route: 058
     Dates: start: 20140501, end: 20180110

REACTIONS (8)
  - Sepsis [Fatal]
  - Hepatic cirrhosis [Fatal]
  - Ascites [Fatal]
  - Faeces discoloured [Fatal]
  - Malaise [Fatal]
  - Septic shock [Fatal]
  - Diarrhoea [Fatal]
  - Pneumonia [Fatal]

NARRATIVE: CASE EVENT DATE: 20180813
